FAERS Safety Report 15009817 (Version 5)
Quarter: 2019Q2

REPORT INFORMATION
  Report Type: Spontaneous
  Country: DE (occurrence: DE)
  Receive Date: 20180614
  Receipt Date: 20190408
  Transmission Date: 20190711
  Serious: Yes (Hospitalization, Other)
  Sender: FDA-Public Use
  Company Number: DE-ACCORD-067994

PATIENT
  Age: 28 Year
  Sex: Male

DRUGS (25)
  1. PROMETHAZINE [Suspect]
     Active Substance: PROMETHAZINE\PROMETHAZINE HYDROCHLORIDE
     Indication: HALLUCINATION
  2. DULOXETINE. [Suspect]
     Active Substance: DULOXETINE
     Indication: HALLUCINATION
  3. ESCITALOPRAM [Concomitant]
     Active Substance: ESCITALOPRAM OXALATE
     Indication: MYOCLONUS
     Dosage: 20 MG
  4. OXAZEPAM. [Concomitant]
     Active Substance: OXAZEPAM
     Indication: HALLUCINATION
     Dosage: DIFFERENT DOSES
  5. CLOBAZAM. [Concomitant]
     Active Substance: CLOBAZAM
     Indication: MYOCLONUS
     Dosage: UP TO 20 MG
  6. CLOZAPINE. [Suspect]
     Active Substance: CLOZAPINE
     Indication: MYOCLONUS
  7. BUPROPION/BUPROPION HYDROCHLORIDE [Suspect]
     Active Substance: BUPROPION HYDROCHLORIDE
     Indication: MYOCLONUS
  8. VENLAFAXINE/VENLAFAXINE HYDROCHLORIDE [Suspect]
     Active Substance: VENLAFAXINE HYDROCHLORIDE
     Indication: MYOCLONUS
     Route: 048
  9. MIRTAZAPINE. [Suspect]
     Active Substance: MIRTAZAPINE
     Indication: MYOCLONUS
  10. VALPROATE [Suspect]
     Active Substance: VALPROIC ACID
     Indication: JUVENILE MYOCLONIC EPILEPSY
  11. OLANZAPINE. [Suspect]
     Active Substance: OLANZAPINE
     Indication: HALLUCINATION
  12. BIPERIDEN [Suspect]
     Active Substance: BIPERIDEN
     Indication: DYSKINESIA
  13. ZONISAMIDE. [Concomitant]
     Active Substance: ZONISAMIDE
     Indication: MYOCLONUS
     Dosage: UP TO 100 MG
  14. ZOPICLONE [Concomitant]
     Active Substance: ZOPICLONE
     Indication: HALLUCINATION
  15. ARIPIPRAZOLE. [Suspect]
     Active Substance: ARIPIPRAZOLE
     Indication: HALLUCINATION
  16. TOPIRAMATE. [Suspect]
     Active Substance: TOPIRAMATE
     Indication: JUVENILE MYOCLONIC EPILEPSY
  17. FLUOXETINE [Suspect]
     Active Substance: FLUOXETINE HYDROCHLORIDE
     Indication: MYOCLONUS
  18. RISPERIDONE. [Suspect]
     Active Substance: RISPERIDONE
     Indication: MYOCLONUS
  19. CARBAMAZEPINE. [Concomitant]
     Active Substance: CARBAMAZEPINE
     Indication: MYOCLONUS
     Dosage: UP TO 900 MG
  20. QUETIAPINE. [Suspect]
     Active Substance: QUETIAPINE
     Indication: HALLUCINATION
     Route: 048
  21. OXCARBAZEPINE. [Concomitant]
     Active Substance: OXCARBAZEPINE
     Indication: MYOCLONUS
     Dosage: GRADUALLY REDUCED, UP TO 2400 MG?RECEIVED OVER ONE YEAR
  22. BRIVARACETAM [Concomitant]
     Active Substance: BRIVARACETAM
     Indication: MYOCLONUS
     Dosage: 200-250 MG RECEIVED OVER ONE YEAR
  23. LEVETIRACETAM. [Suspect]
     Active Substance: LEVETIRACETAM
     Indication: JUVENILE MYOCLONIC EPILEPSY
  24. PERAMPANEL [Suspect]
     Active Substance: PERAMPANEL
     Indication: JUVENILE MYOCLONIC EPILEPSY
  25. AMISULPRIDE [Suspect]
     Active Substance: AMISULPRIDE
     Indication: MYOCLONUS

REACTIONS (5)
  - Treatment failure [Unknown]
  - Fatigue [Unknown]
  - Cognitive disorder [Unknown]
  - Drug intolerance [Unknown]
  - Myoclonus [Recovering/Resolving]
